FAERS Safety Report 19953255 (Version 1)
Quarter: 2021Q4

REPORT INFORMATION
  Report Type: Spontaneous
  Country: US (occurrence: US)
  Receive Date: 20211013
  Receipt Date: 20211013
  Transmission Date: 20220303
  Serious: Yes (Life-Threatening, Hospitalization)
  Sender: FDA-Public Use
  Company Number: None

PATIENT
  Sex: Female
  Weight: 72 kg

DRUGS (9)
  1. PRILOSEC OTC [Suspect]
     Active Substance: OMEPRAZOLE MAGNESIUM
     Indication: Gastrooesophageal reflux disease
     Dosage: ?          QUANTITY:1 TABLET(S);
     Route: 048
     Dates: start: 20050101, end: 20111001
  2. IPRATROPIUM BROMIDE [Concomitant]
     Active Substance: IPRATROPIUM BROMIDE
  3. LEVOTHYROXINE [Concomitant]
     Active Substance: LEVOTHYROXINE
  4. METOPROLOL TARTRATE [Concomitant]
     Active Substance: METOPROLOL TARTRATE
  5. PAROXETINE HYDROCHLORIDE [Concomitant]
     Active Substance: PAROXETINE HYDROCHLORIDE
  6. ROPINIROLE [Concomitant]
     Active Substance: ROPINIROLE
  7. ERGOCALCIFEROL [Concomitant]
     Active Substance: ERGOCALCIFEROL
  8. FAMOTIDINE [Concomitant]
     Active Substance: FAMOTIDINE
  9. OMEPRAZOLE [Suspect]
     Active Substance: OMEPRAZOLE

REACTIONS (6)
  - Chronic kidney disease [None]
  - Condition aggravated [None]
  - Iron deficiency anaemia [None]
  - Restless legs syndrome [None]
  - Dyspnoea [None]
  - Hiatus hernia [None]
